FAERS Safety Report 6461589-4 (Version None)
Quarter: 2009Q4

REPORT INFORMATION
  Report Type: 
  Country: None (occurrence: None)
  Receive Date: 20091130
  Receipt Date: 20091120
  Transmission Date: 20100525
  Serious: Yes (Hospitalization)
  Sender: FDA-Public Use
  Company Number: AU-ASTRAZENECA-2009SE27729

PATIENT
  Age: 7258 Day
  Sex: Male
  Weight: 67 kg

DRUGS (2)
  1. CRESTOR [Suspect]
     Route: 048
     Dates: start: 20091005, end: 20091012
  2. RISPERIDONE [Concomitant]

REACTIONS (3)
  - ASPHYXIA [None]
  - DEPRESSED MOOD [None]
  - SUICIDE ATTEMPT [None]
